FAERS Safety Report 24187909 (Version 1)
Quarter: 2024Q3

REPORT INFORMATION
  Report Type: Spontaneous
  Country: US (occurrence: US)
  Receive Date: 20240808
  Receipt Date: 20240808
  Transmission Date: 20241016
  Serious: No
  Sender: MERCK
  Company Number: US-009507513-2407USA008115

PATIENT
  Age: 62 Year
  Sex: Female

DRUGS (4)
  1. TRUSOPT [Suspect]
     Active Substance: DORZOLAMIDE HYDROCHLORIDE
     Indication: Intraocular pressure test abnormal
     Dosage: 1 DOSAGE FORM, 2 TIMES A DAY IN THE LEFT EYE
     Route: 047
  2. ACETAZOLAMIDE [Suspect]
     Active Substance: ACETAZOLAMIDE
     Indication: Intraocular pressure test abnormal
     Dosage: 250 MG 2 TIMES A DAY
     Route: 048
  3. BRIMONIDINE [Suspect]
     Active Substance: BRIMONIDINE TARTRATE
     Indication: Intraocular pressure test abnormal
     Dosage: 1 DOSAGE FORM, 2 TIMES A DAY IN THE LEFT EYE
     Route: 047
  4. TIMOLOL [Suspect]
     Active Substance: TIMOLOL
     Indication: Intraocular pressure test abnormal
     Dosage: 1 DOSAGE FORM, 2 TIMES A DAY IN THE LEFT EYE
     Route: 047

REACTIONS (1)
  - Drug ineffective [Unknown]
